FAERS Safety Report 16273837 (Version 2)
Quarter: 2019Q3

REPORT INFORMATION
  Report Type: Spontaneous
  Country: US (occurrence: US)
  Receive Date: 20190503
  Receipt Date: 20190805
  Transmission Date: 20191004
  Serious: No
  Sender: FDA-Public Use
  Company Number: US-RADIUS HEALTH INC.-2019US000737

PATIENT
  Age: 60 Year
  Sex: Female
  Weight: 45.35 kg

DRUGS (2)
  1. TYMLOS [Suspect]
     Active Substance: ABALOPARATIDE
     Indication: OSTEOPOROSIS POSTMENOPAUSAL
     Dosage: 80 MCG, DAILY
     Route: 058
     Dates: start: 20190215
  2. VITAMIN D                          /00107901/ [Concomitant]
     Active Substance: ERGOCALCIFEROL
     Indication: PRODUCT USED FOR UNKNOWN INDICATION

REACTIONS (9)
  - Back pain [Unknown]
  - Electrocardiogram abnormal [Unknown]
  - Dizziness [Unknown]
  - Muscle injury [Unknown]
  - Headache [Unknown]
  - Waist circumference increased [Unknown]
  - Arthralgia [Unknown]
  - Injection site bruising [Unknown]
  - Bone pain [Unknown]

NARRATIVE: CASE EVENT DATE: 201902
